FAERS Safety Report 6698864-4 (Version None)
Quarter: 2010Q2

REPORT INFORMATION
  Report Type: 
  Country: None (occurrence: None)
  Receive Date: 20100427
  Receipt Date: 20100422
  Transmission Date: 20101027
  Serious: Yes (Death, Other)
  Sender: FDA-Public Use
  Company Number: PHHY2010JP02052

PATIENT
  Sex: Female
  Weight: 43 kg

DRUGS (11)
  1. DIOVAN [Suspect]
     Indication: HYPERTENSION
     Dosage: 40 MG, QD
     Route: 048
     Dates: start: 20081010, end: 20081106
  2. DIOVAN [Suspect]
     Dosage: 80 MG, QD
     Route: 048
     Dates: start: 20081107, end: 20090619
  3. FLUITRAN [Concomitant]
     Indication: HYPERTENSION
     Dosage: 2 MG, UNK
     Route: 048
     Dates: start: 20081015, end: 20090619
  4. NORVASC [Concomitant]
     Indication: HYPERTENSION
     Dosage: 2.5 MG, UNK
     Route: 048
     Dates: start: 20090116, end: 20090119
  5. ZANTAC [Concomitant]
     Dosage: 150 MG, UNK
     Route: 048
     Dates: start: 20081010, end: 20090619
  6. MAGMITT [Concomitant]
     Dosage: 750 MG, UNK
     Route: 048
     Dates: start: 20081010, end: 20090619
  7. LENDORMIN D [Concomitant]
     Dosage: 0.25 MG, UNK
     Route: 048
     Dates: start: 20081010, end: 20090619
  8. TRIAZOLAM [Concomitant]
     Dosage: 0.25 MG, UNK
     Route: 048
     Dates: start: 20081010, end: 20090619
  9. SYMMETREL [Concomitant]
     Dosage: 150 MG, UNK
     Route: 048
     Dates: start: 20081010, end: 20090619
  10. ALINAMIN F [Concomitant]
     Dosage: 75 MG, UNK
     Route: 048
     Dates: start: 20081010, end: 20090619
  11. DEPROMEL [Concomitant]
     Dosage: 50 MG
     Route: 048
     Dates: start: 20081010, end: 20090619

REACTIONS (9)
  - BLOOD PRESSURE DECREASED [None]
  - BLOOD PRESSURE FLUCTUATION [None]
  - BLOOD UREA INCREASED [None]
  - DEPRESSED LEVEL OF CONSCIOUSNESS [None]
  - DIPLEGIA [None]
  - LYMPHOMA [None]
  - MALIGNANT NEOPLASM PROGRESSION [None]
  - NUTRITIONAL CONDITION ABNORMAL [None]
  - RESPIRATORY FAILURE [None]
